FAERS Safety Report 9984715 (Version 2)
Quarter: 2014Q1

REPORT INFORMATION
  Report Type: Report from Study
  Country: US (occurrence: US)
  Receive Date: 20140304
  Receipt Date: 20140304
  Transmission Date: 20141002
  Serious: No
  Sender: FDA-Public Use
  Company Number: US-ABBVIE-13P-163-1062319-00

PATIENT
  Age: 57 Year
  Sex: Female

DRUGS (17)
  1. HUMIRA [Suspect]
     Indication: RHEUMATOID ARTHRITIS
     Dates: start: 200611
  2. METHOTREXATE [Concomitant]
     Indication: PRODUCT USED FOR UNKNOWN INDICATION
     Dosage: WEEKLY
     Route: 058
  3. EFFEXOR XR [Concomitant]
     Indication: FIBROMYALGIA
     Dosage: 150 MG DAILY
  4. LORATIDINE [Concomitant]
     Indication: SEASONAL ALLERGY
     Dosage: 10 MG DAILY
  5. ZOLOFT [Concomitant]
     Indication: FIBROMYALGIA
     Dosage: 50 MG DAILY
  6. VIT D [Concomitant]
     Indication: NUTRITIONAL SUPPLEMENTATION
     Dosage: 2000 IU DAILY
  7. FOLIC ACID [Concomitant]
     Indication: NUTRITIONAL SUPPLEMENTATION
     Dosage: 800 MG DAILY
  8. FISH OIL [Concomitant]
     Indication: NUTRITIONAL SUPPLEMENTATION
     Dosage: 900 MG - 1 GM DAILY
  9. LIPITOR [Concomitant]
     Indication: BLOOD CHOLESTEROL INCREASED
     Dosage: 40 MG DAILY
  10. VICODIN [Concomitant]
     Indication: PAIN
     Dosage: 7.5/500 1 - 2 DAILY
  11. RANITIDINE [Concomitant]
     Indication: HIATUS HERNIA
  12. ACTOS [Concomitant]
     Indication: TYPE 2 DIABETES MELLITUS
     Dosage: 15 MG DAILY
  13. CLONAZEPAM [Concomitant]
     Indication: INSOMNIA
     Dosage: AT BEDTIME
  14. TEMAZEPAM [Concomitant]
     Indication: INSOMNIA
     Dosage: AT BEDTIME
  15. PREDNISONE [Concomitant]
     Indication: PRODUCT USED FOR UNKNOWN INDICATION
     Dosage: AT TIMES
  16. UNKNOWN STEROID [Concomitant]
     Indication: PRODUCT USED FOR UNKNOWN INDICATION
     Dosage: IN JOINTS
  17. UNKNOWN TOPICAL CREAM MIXTURE [Concomitant]
     Indication: PAIN
     Dosage: 2 - 3 PUMPS, APPLIED 3 TIMES DAILY TO BOTH FEET
     Route: 061

REACTIONS (5)
  - Neuropathy peripheral [Not Recovered/Not Resolved]
  - Pain [Unknown]
  - Osteoarthritis [Unknown]
  - Pain [Unknown]
  - Erythema [Unknown]
